FAERS Safety Report 19153953 (Version 1)
Quarter: 2021Q2

REPORT INFORMATION
  Report Type: Report from Study
  Country: DE (occurrence: DE)
  Receive Date: 20210419
  Receipt Date: 20210419
  Transmission Date: 20210717
  Serious: Yes (Hospitalization)
  Sender: FDA-Public Use
  Company Number: DE-CELGENEUS-DEU-20210402505

PATIENT
  Age: 76 Year
  Sex: Male
  Weight: 92 kg

DRUGS (2)
  1. DEXAMETHASONE. [Suspect]
     Active Substance: DEXAMETHASONE
     Indication: PLASMA CELL MYELOMA
     Dosage: 8 MILLIGRAM
     Route: 048
     Dates: start: 20141110, end: 20180720
  2. REVLIMID [Suspect]
     Active Substance: LENALIDOMIDE
     Indication: PLASMA CELL MYELOMA
     Dosage: 15 MILLIGRAM
     Route: 048
     Dates: start: 20141110, end: 20180719

REACTIONS (1)
  - Joint dislocation [Recovered/Resolved]

NARRATIVE: CASE EVENT DATE: 20180821
